FAERS Safety Report 4700657-1 (Version None)
Quarter: 2005Q2

REPORT INFORMATION
  Report Type: 
  Country: None (occurrence: None)
  Receive Date: 20050627
  Receipt Date: 20050120
  Transmission Date: 20051028
  Serious: Yes (Hospitalization)
  Sender: FDA-Public Use
  Company Number: US-MERCK-0501USA03233

PATIENT
  Age: 41 Year
  Sex: Female
  Weight: 73 kg

DRUGS (5)
  1. VIOXX [Suspect]
     Indication: NECK PAIN
     Route: 048
     Dates: start: 20000610, end: 20000610
  2. VIOXX [Suspect]
     Indication: NECK INJURY
     Route: 048
     Dates: start: 20000610, end: 20000610
  3. NAPROXEN [Concomitant]
     Indication: NECK INJURY
     Route: 065
     Dates: start: 19990823, end: 19990923
  4. NAPROXEN [Concomitant]
     Route: 065
     Dates: start: 20000531, end: 20000630
  5. NAPROXEN [Concomitant]
     Route: 065
     Dates: start: 20001030, end: 20001130

REACTIONS (17)
  - ANXIETY [None]
  - BACK INJURY [None]
  - BLOOD CHOLESTEROL INCREASED [None]
  - CARDIAC DISORDER [None]
  - CAROTID ARTERY STENOSIS [None]
  - CHEST PAIN [None]
  - CORONARY ARTERY DISEASE [None]
  - DIZZINESS [None]
  - ELECTROCARDIOGRAM ST SEGMENT DEPRESSION [None]
  - ELECTROCARDIOGRAM T WAVE INVERSION [None]
  - HERNIA [None]
  - HYPERGLYCAEMIA [None]
  - HYPERTENSION [None]
  - HYPERTRIGLYCERIDAEMIA [None]
  - INTERVERTEBRAL DISC DISORDER [None]
  - MYOCARDIAL INFARCTION [None]
  - VERTIGO [None]
